FAERS Safety Report 16696979 (Version 3)
Quarter: 2019Q4

REPORT INFORMATION
  Report Type: Spontaneous
  Country: US (occurrence: US)
  Receive Date: 20190813
  Receipt Date: 20191007
  Transmission Date: 20200122
  Serious: No
  Sender: FDA-Public Use
  Company Number: US-PFIZER INC-2019341888

PATIENT
  Age: 47 Year
  Sex: Male

DRUGS (1)
  1. EUCRISA [Suspect]
     Active Substance: CRISABOROLE
     Indication: DERMATITIS ATOPIC
     Dosage: UNK

REACTIONS (4)
  - Skin irritation [Unknown]
  - Application site pain [Unknown]
  - Therapeutic product effect incomplete [Unknown]
  - Rash erythematous [Unknown]
